FAERS Safety Report 21054249 (Version 1)
Quarter: 2022Q3

REPORT INFORMATION
  Report Type: Spontaneous
  Country: CN (occurrence: CN)
  Receive Date: 20220707
  Receipt Date: 20220707
  Transmission Date: 20221027
  Serious: Yes (Life-Threatening, Hospitalization)
  Sender: FDA-Public Use
  Company Number: CN-BAXTER-2022BAX013846

PATIENT
  Age: 2 Year
  Sex: Male
  Weight: 11.5 kg

DRUGS (12)
  1. DEXTROSE [Suspect]
     Active Substance: DEXTROSE
     Indication: Medication dilution
     Dosage: UNK, 1 TO 4 CYCLE
     Route: 041
  2. DEXTROSE [Suspect]
     Active Substance: DEXTROSE
     Dosage: 250 ML, QD, 5TH CYCLE
     Route: 041
     Dates: start: 20220609, end: 20220609
  3. DEXTROSE [Suspect]
     Active Substance: DEXTROSE
     Dosage: UNK, DOSE RE-INTRODUCED
     Route: 041
  4. SODIUM CHLORIDE [Suspect]
     Active Substance: SODIUM CHLORIDE
     Indication: Medication dilution
     Dosage: UNK, 1 TO 4 CYCLE
     Route: 041
  5. SODIUM CHLORIDE [Suspect]
     Active Substance: SODIUM CHLORIDE
     Dosage: 100 ML, QD, 5TH CYCLE
     Route: 041
     Dates: start: 20220609, end: 20220610
  6. SODIUM CHLORIDE [Suspect]
     Active Substance: SODIUM CHLORIDE
     Dosage: UNK, DOSE RE-INTRODUCED
     Route: 041
  7. PARAPLATIN [Suspect]
     Active Substance: CARBOPLATIN
     Indication: Hepatoblastoma
     Dosage: UNK, 1 TO 4 CYCLE
     Route: 041
  8. PARAPLATIN [Suspect]
     Active Substance: CARBOPLATIN
     Dosage: 250 MG, QD, 5TH CYCLE
     Route: 041
     Dates: start: 20220609, end: 20220609
  9. PARAPLATIN [Suspect]
     Active Substance: CARBOPLATIN
     Dosage: UNK, DOSE RE-INTRODUCED
     Route: 041
  10. DOXORUBICIN HYDROCHLORIDE [Suspect]
     Active Substance: DOXORUBICIN HYDROCHLORIDE
     Indication: Hepatoblastoma
     Dosage: UNK, 1 TO 4 CYCLE
     Route: 041
  11. DOXORUBICIN HYDROCHLORIDE [Suspect]
     Active Substance: DOXORUBICIN HYDROCHLORIDE
     Dosage: 10 MG, QD, 5TH CYCLE
     Route: 041
     Dates: start: 20220609, end: 20220610
  12. DOXORUBICIN HYDROCHLORIDE [Suspect]
     Active Substance: DOXORUBICIN HYDROCHLORIDE
     Dosage: UNK, DOSE RE-INTRODUCED
     Route: 041

REACTIONS (4)
  - Haemoglobin decreased [Recovering/Resolving]
  - White blood cell count decreased [Recovering/Resolving]
  - Platelet count decreased [Recovering/Resolving]
  - Pallor [Recovering/Resolving]

NARRATIVE: CASE EVENT DATE: 20220621
